FAERS Safety Report 18373604 (Version 2)
Quarter: 2021Q3

REPORT INFORMATION
  Report Type: Spontaneous
  Country: SA (occurrence: SA)
  Receive Date: 20201012
  Receipt Date: 20210722
  Transmission Date: 20211014
  Serious: Yes (Other)
  Sender: FDA-Public Use
  Company Number: SA-MYLANLABS-2020M1086028

PATIENT
  Age: 26 Year
  Sex: Female

DRUGS (1)
  1. EPIPEN [Suspect]
     Active Substance: EPINEPHRINE
     Indication: PRODUCT USED FOR UNKNOWN INDICATION
     Dosage: 0.3 MILLIGRAM (INJECTED THE WHOLE EPIPEN, CONTAINING 0.3 MG ...

REACTIONS (3)
  - Injection site ischaemia [Recovered/Resolved]
  - Injection site necrosis [Recovered/Resolved]
  - Accidental exposure to product [Recovered/Resolved]
